FAERS Safety Report 10707422 (Version 1)
Quarter: 2015Q1

REPORT INFORMATION
  Report Type: Spontaneous
  Country: US (occurrence: None)
  Receive Date: 20150112
  Receipt Date: 20150112
  Transmission Date: 20150721
  Serious: Yes (Hospitalization)
  Sender: FDA-Public Use
  Company Number: None

PATIENT
  Age: 67 Year
  Sex: Male
  Weight: 95.6 kg

DRUGS (1)
  1. SUNITINIB MALATE [Suspect]
     Active Substance: SUNITINIB MALATE
     Dosage: PATIENT TWO WEEKS BREAKS STARTED 1/5/2015. PATIENT WILL HOLD THE DRUG FROM 1/5/2015 -1/19/2015
     Dates: start: 20141208, end: 20150104

REACTIONS (1)
  - Blood sodium decreased [None]

NARRATIVE: CASE EVENT DATE: 20150105
